FAERS Safety Report 16708931 (Version 2)
Quarter: 2019Q4

REPORT INFORMATION
  Report Type: Spontaneous
  Country: JP (occurrence: JP)
  Receive Date: 20190816
  Receipt Date: 20191009
  Transmission Date: 20200122
  Serious: Yes (Death, Life-Threatening)
  Sender: FDA-Public Use
  Company Number: JP-TERSERA THERAPEUTICS LLC-2019TRS001509

PATIENT

DRUGS (2)
  1. ZOLADEX [Suspect]
     Active Substance: GOSERELIN ACETATE
     Indication: BREAST CANCER FEMALE
     Dosage: 3.6 MILLIGRAM, EVERY 4 WEEKS
     Route: 058
     Dates: start: 201704
  2. NOLVADEX [Suspect]
     Active Substance: TAMOXIFEN CITRATE
     Indication: BREAST CANCER FEMALE
     Dosage: 20 MILLIGRAM, QD (EACH DAY)
     Route: 048
     Dates: start: 20161219, end: 20170116

REACTIONS (2)
  - Pneumothorax [Fatal]
  - Sarcoma uterus [Fatal]

NARRATIVE: CASE EVENT DATE: 201703
